FAERS Safety Report 25231887 (Version 1)
Quarter: 2025Q2

REPORT INFORMATION
  Report Type: Report from Study
  Country: US (occurrence: US)
  Receive Date: 20250423
  Receipt Date: 20250423
  Transmission Date: 20250717
  Serious: Yes (Hospitalization, Other)
  Sender: PFIZER
  Company Number: US-PFIZER INC-PV202300191963

PATIENT
  Age: 49 Year
  Sex: Female

DRUGS (10)
  1. BRAFTOVI [Suspect]
     Active Substance: ENCORAFENIB
     Indication: Malignant melanoma
     Dosage: 450 MG, 1X/DAY (SIX 75-MG CAPSULES ONCE DAILY)
     Route: 048
     Dates: start: 20231104
  2. BRAFTOVI [Suspect]
     Active Substance: ENCORAFENIB
     Dosage: 450 MG, 1X/DAY
     Route: 048
     Dates: start: 202311
  3. BRAFTOVI [Suspect]
     Active Substance: ENCORAFENIB
     Dosage: 225MG (3-75MG CAPS) ONCE DAILY
     Route: 048
     Dates: start: 202403
  4. BRAFTOVI [Suspect]
     Active Substance: ENCORAFENIB
     Dosage: 450 MG, 1X/DAY
     Route: 048
     Dates: start: 202410
  5. MEKTOVI [Suspect]
     Active Substance: BINIMETINIB
     Indication: Malignant melanoma
     Dosage: 45 MG, 2X/DAY
     Route: 048
     Dates: start: 20231103
  6. MEKTOVI [Suspect]
     Active Substance: BINIMETINIB
     Dosage: 45 MG, 2X/DAY
     Route: 048
     Dates: start: 20231103
  7. MEKTOVI [Suspect]
     Active Substance: BINIMETINIB
     Dosage: 45 MG, 1X/DAY
     Route: 048
     Dates: start: 202311
  8. MEKTOVI [Suspect]
     Active Substance: BINIMETINIB
     Dosage: 45 MG (3 - 15MG TABS) ONCE DAILY
     Route: 048
     Dates: start: 202403
  9. MEKINIST [Concomitant]
     Active Substance: TRAMETINIB DIMETHYL SULFOXIDE
  10. TAFINLAR [Concomitant]
     Active Substance: DABRAFENIB MESYLATE

REACTIONS (19)
  - Weight decreased [Recovering/Resolving]
  - Malignant neoplasm progression [Unknown]
  - Malignant melanoma [Unknown]
  - Metastases to central nervous system [Unknown]
  - Arthralgia [Not Recovered/Not Resolved]
  - Pyrexia [Recovered/Resolved]
  - Condition aggravated [Recovered/Resolved]
  - Abdominal pain upper [Recovered/Resolved]
  - Rash [Not Recovered/Not Resolved]
  - Arthralgia [Not Recovered/Not Resolved]
  - Nerve injury [Unknown]
  - Fatigue [Not Recovered/Not Resolved]
  - Nausea [Not Recovered/Not Resolved]
  - Dry mouth [Not Recovered/Not Resolved]
  - Condition aggravated [Not Recovered/Not Resolved]
  - Myalgia [Not Recovered/Not Resolved]
  - Condition aggravated [Not Recovered/Not Resolved]
  - Arthralgia [Not Recovered/Not Resolved]
  - Condition aggravated [Not Recovered/Not Resolved]

NARRATIVE: CASE EVENT DATE: 20231101
